FAERS Safety Report 5738191-2 (Version None)
Quarter: 2008Q2

REPORT INFORMATION
  Report Type: 
  Country: None (occurrence: None)
  Receive Date: 20080514
  Receipt Date: 20080502
  Transmission Date: 20081010
  Serious: Yes (Other)
  Sender: FDA-Public Use
  Company Number: US-PFIZER INC-2008023840

PATIENT
  Sex: Male
  Weight: 127.5 kg

DRUGS (2)
  1. CHANTIX [Suspect]
     Indication: SMOKING CESSATION THERAPY
     Route: 048
  2. CHANTIX [Suspect]
     Indication: TOBACCO ABUSE

REACTIONS (5)
  - DIZZINESS [None]
  - FACE INJURY [None]
  - FALL [None]
  - SYNCOPE [None]
  - WEIGHT DECREASED [None]
